FAERS Safety Report 16193095 (Version 6)
Quarter: 2020Q1

REPORT INFORMATION
  Report Type: Spontaneous
  Country: US (occurrence: US)
  Receive Date: 20190413
  Receipt Date: 20200307
  Transmission Date: 20200409
  Serious: Yes (Hospitalization)
  Sender: FDA-Public Use
  Company Number: US-TEVA-2019-US-1037725

PATIENT
  Sex: Male

DRUGS (12)
  1. SYNRIBO [Suspect]
     Active Substance: OMACETAXINE MEPESUCCINATE
     Dosage: DOSAGE:2.475MG/0.71ML?TWICE DAILY FOR 7 DAYS
     Route: 065
     Dates: start: 20190531
  2. PROMETHAZINE [Concomitant]
     Active Substance: PROMETHAZINE HYDROCHLORIDE
  3. FENTANYL. [Concomitant]
     Active Substance: FENTANYL
  4. LOMOTIL [Concomitant]
     Active Substance: ATROPINE SULFATE\DIPHENOXYLATE HYDROCHLORIDE
  5. COMPAZINE [Concomitant]
     Active Substance: PROCHLORPERAZINE MALEATE
  6. LORAZEPAM. [Concomitant]
     Active Substance: LORAZEPAM
  7. SYNRIBO [Suspect]
     Active Substance: OMACETAXINE MEPESUCCINATE
     Dosage: DOSAGE:2.5MG/0.57ML, BID X 7 DAYS, TWICE DAILY X7 DAYS OF A 28 DAY CYCLE.
     Route: 065
     Dates: start: 20190504
  8. HYDROMORPHONE [Concomitant]
     Active Substance: HYDROMORPHONE
  9. SYNRIBO [Suspect]
     Active Substance: OMACETAXINE MEPESUCCINATE
     Indication: CHRONIC MYELOID LEUKAEMIA
     Dosage: DOSAGE:2.475MG/0.71ML, TWICE DAILY FOR 14 DAYS
     Route: 065
     Dates: start: 20190404
  10. SYNRIBO [Suspect]
     Active Substance: OMACETAXINE MEPESUCCINATE
     Dosage: DOSAGE:2.5MG/0.71ML, BID X 7 DAYS
     Route: 065
  11. ZOFRAN [Concomitant]
     Active Substance: ONDANSETRON HYDROCHLORIDE
  12. OMEPRAZOLE. [Concomitant]
     Active Substance: OMEPRAZOLE

REACTIONS (15)
  - Injection site erythema [Unknown]
  - Vomiting [Unknown]
  - Loss of consciousness [Unknown]
  - Pain [Unknown]
  - Dyspnoea [Unknown]
  - Flushing [Recovered/Resolved]
  - Asthenia [Unknown]
  - Headache [Unknown]
  - Nausea [Not Recovered/Not Resolved]
  - Dizziness [Unknown]
  - Splenomegaly [Not Recovered/Not Resolved]
  - Swelling [Unknown]
  - Rash [Unknown]
  - Abdominal pain upper [Unknown]
  - Diarrhoea [Unknown]
